FAERS Safety Report 9311025 (Version 1)
Quarter: 2013Q1

REPORT INFORMATION
  Report Type: Spontaneous
  Country: IT (occurrence: None)
  Receive Date: 20130109
  Receipt Date: 20130109
  Transmission Date: 20140127
  Serious: Yes (Hospitalization)
  Sender: FDA-Public Use
  Company Number: 2012IT000715

PATIENT
  Age: 59 Year
  Sex: Male
  Weight: 71 kg

DRUGS (5)
  1. PONATINIB [Suspect]
     Indication: CHROMOSOME ANALYSIS ABNORMAL
     Route: 048
     Dates: start: 20120731, end: 20120808
  2. PONATINIB [Suspect]
     Indication: CHRONIC MYELOID LEUKAEMIA
     Route: 048
     Dates: start: 20120731, end: 20120808
  3. FUROSEMIDE [Concomitant]
  4. OMEPRAZOLE [Concomitant]
  5. TRIATEC [Suspect]

REACTIONS (25)
  - Myocardial infarction [None]
  - Acute respiratory failure [None]
  - Pulmonary oedema [None]
  - Bronchospasm [None]
  - Ventricular tachycardia [None]
  - Pleural effusion [None]
  - Aortic calcification [None]
  - Cardiomegaly [None]
  - Blood glucose increased [None]
  - Haemoglobin decreased [None]
  - Left ventricular hypertrophy [None]
  - Blood calcium decreased [None]
  - Blood sodium decreased [None]
  - Blood chloride decreased [None]
  - Blood urea increased [None]
  - Blood lactic acid increased [None]
  - Pericardial effusion [None]
  - Red blood cell count decreased [None]
  - Mean cell volume increased [None]
  - Platelet count increased [None]
  - Ejection fraction decreased [None]
  - Haematocrit decreased [None]
  - Blood creatinine increased [None]
  - Dilatation atrial [None]
  - Systolic dysfunction [None]
